FAERS Safety Report 8343971-3 (Version None)
Quarter: 2012Q1

REPORT INFORMATION
  Report Type: 
  Country: None (occurrence: None)
  Receive Date: 20120330
  Receipt Date: 20110725
  Transmission Date: 20120608
  Serious: Yes (Other)
  Sender: FDA-Public Use
  Company Number: PHHY2011US40477

PATIENT
  Age: 70 Year
  Sex: Female

DRUGS (16)
  1. PAROXETINE HCL [Concomitant]
  2. ZOLPIDEM [Concomitant]
  3. VITAMIN B6 [Concomitant]
  4. FOLIC ACID [Concomitant]
  5. PAXIL [Concomitant]
  6. CALCIUM CARBONATE [Concomitant]
  7. OCUVITE (ASCORBIC ACID, RETINOL, TOCOPHEROL) [Concomitant]
  8. METOPROLOL TARTRATE [Concomitant]
  9. BUPROPION HCL [Concomitant]
  10. AMBENE (CYANOCOBALAMIN, PHENYLBUTAZONE SODIUM) [Concomitant]
  11. ASPIRIN [Concomitant]
  12. CRESTOR [Concomitant]
  13. VITAMIN D [Concomitant]
  14. EXELON [Suspect]
     Indication: AMNESIA
     Dosage: 4.6 MG/ 24 HOURS, TRANSDERMAL
     Route: 062
     Dates: start: 20110501, end: 20110501
  15. NEFAZODONE HCL [Concomitant]
  16. VITAMIN B12 [Concomitant]

REACTIONS (2)
  - FALL [None]
  - DIZZINESS [None]
